FAERS Safety Report 17812244 (Version 1)
Quarter: 2020Q2

REPORT INFORMATION
  Report Type: Spontaneous
  Country: US (occurrence: US)
  Receive Date: 20200521
  Receipt Date: 20200521
  Transmission Date: 20200714
  Serious: Yes (Death)
  Sender: FDA-Public Use
  Company Number: None

PATIENT
  Age: 79 Year
  Sex: Male
  Weight: 41.1 kg

DRUGS (11)
  1. FOLIC ACID. [Concomitant]
     Active Substance: FOLIC ACID
     Dates: start: 20200508, end: 20200514
  2. LEVETIRACETAM. [Concomitant]
     Active Substance: LEVETIRACETAM
     Dates: start: 20200512, end: 20200515
  3. ASPIRIN. [Concomitant]
     Active Substance: ASPIRIN
     Dates: start: 20200508, end: 20200514
  4. TERAZOSIN [Concomitant]
     Active Substance: TERAZOSIN HYDROCHLORIDE
     Dates: start: 20200508, end: 20200514
  5. PANTOPRAZOLE [Concomitant]
     Active Substance: PANTOPRAZOLE
     Dates: start: 20200508, end: 20200514
  6. FINASTERIDE. [Concomitant]
     Active Substance: FINASTERIDE
     Dates: start: 20200508, end: 20200514
  7. REMDESIVIR. [Suspect]
     Active Substance: REMDESIVIR
     Indication: COVID-19
     Route: 042
     Dates: start: 20200510, end: 20200515
  8. CYANOCOBALAMIN. [Concomitant]
     Active Substance: CYANOCOBALAMIN
     Dates: start: 20200508, end: 20200514
  9. MORPHINE PCA [Concomitant]
     Active Substance: MORPHINE
     Dates: start: 20200512, end: 20200515
  10. ENOXAPARIN [Concomitant]
     Active Substance: ENOXAPARIN
     Dates: start: 20200509, end: 20200515
  11. ATORVASTATIN [Concomitant]
     Active Substance: ATORVASTATIN
     Dates: start: 20200508, end: 20200514

REACTIONS (1)
  - Death [None]

NARRATIVE: CASE EVENT DATE: 20200515
